FAERS Safety Report 12596532 (Version 1)
Quarter: 2016Q3

REPORT INFORMATION
  Report Type: Spontaneous
  Country: AU (occurrence: AU)
  Receive Date: 20160726
  Receipt Date: 20160726
  Transmission Date: 20161109
  Serious: Yes (Hospitalization)
  Sender: FDA-Public Use
  Company Number: AU-PFIZER INC-3098166

PATIENT
  Age: 64 Year
  Sex: Female

DRUGS (10)
  1. TRASTUZUMAB [Suspect]
     Active Substance: TRASTUZUMAB
     Indication: INVASIVE DUCTAL BREAST CARCINOMA
  2. PREGABALIN. [Concomitant]
     Active Substance: PREGABALIN
  3. ATORVASTATIN [Concomitant]
     Active Substance: ATORVASTATIN
  4. MIRTAZAPINE. [Concomitant]
     Active Substance: MIRTAZAPINE
  5. WARFARIN [Concomitant]
     Active Substance: WARFARIN
  6. DOCETAXEL. [Suspect]
     Active Substance: DOCETAXEL
     Indication: INVASIVE DUCTAL BREAST CARCINOMA
  7. METOPROLOL. [Concomitant]
     Active Substance: METOPROLOL
  8. DIGOXIN. [Concomitant]
     Active Substance: DIGOXIN
  9. CARBOPLATIN. [Suspect]
     Active Substance: CARBOPLATIN
     Indication: INVASIVE DUCTAL BREAST CARCINOMA
  10. IRBESARTAN. [Concomitant]
     Active Substance: IRBESARTAN

REACTIONS (1)
  - Posterior reversible encephalopathy syndrome [Recovered/Resolved]
